FAERS Safety Report 13191953 (Version 4)
Quarter: 2017Q1

REPORT INFORMATION
  Report Type: Spontaneous
  Country: US (occurrence: US)
  Receive Date: 20170207
  Receipt Date: 20170330
  Transmission Date: 20170428
  Serious: Yes (Hospitalization, Other)
  Sender: FDA-Public Use
  Company Number: US-ASTELLAS-2017US004215

PATIENT
  Age: 88 Year
  Sex: Male

DRUGS (3)
  1. XTANDI [Suspect]
     Active Substance: ENZALUTAMIDE
     Indication: HORMONE-REFRACTORY PROSTATE CANCER
     Route: 065
  2. XTANDI [Suspect]
     Active Substance: ENZALUTAMIDE
     Indication: BONE CANCER METASTATIC
  3. BICALUTAMIDE. [Concomitant]
     Active Substance: BICALUTAMIDE
     Indication: PRODUCT USED FOR UNKNOWN INDICATION
     Route: 065
     Dates: end: 20170120

REACTIONS (9)
  - Fall [Unknown]
  - Cerebral thrombosis [Unknown]
  - Neck injury [Unknown]
  - Balance disorder [Unknown]
  - Diarrhoea [Unknown]
  - Fall [Unknown]
  - Bone pain [Unknown]
  - Head injury [Unknown]
  - Head injury [Unknown]

NARRATIVE: CASE EVENT DATE: 201611
